FAERS Safety Report 5793290-4 (Version None)
Quarter: 2008Q2

REPORT INFORMATION
  Report Type: 
  Country: None (occurrence: None)
  Receive Date: 20080626
  Receipt Date: 20080626
  Transmission Date: 20081010
  Serious: No
  Sender: FDA-Public Use
  Company Number: None

PATIENT
  Age: 50 Year
  Sex: Male
  Weight: 74.4 kg

DRUGS (2)
  1. CEFAZOLIN [Suspect]
     Indication: SURGERY
     Dosage: 1 GRAM X 1 IV
     Route: 042
     Dates: start: 20080128
  2. VECURONIUM [Suspect]
     Dosage: 5 MG X1 IVP
     Route: 042

REACTIONS (3)
  - BLOOD PRESSURE SYSTOLIC DECREASED [None]
  - FLUSHING [None]
  - RASH [None]
